FAERS Safety Report 8517839-3 (Version None)
Quarter: 2012Q3

REPORT INFORMATION
  Report Type: 
  Country: None (occurrence: None)
  Receive Date: 20120718
  Receipt Date: 20120712
  Transmission Date: 20120928
  Serious: No
  Sender: FDA-Public Use
  Company Number: US-BAYER-2012-070969

PATIENT
  Age: 86 Year
  Sex: Female
  Weight: 40 kg

DRUGS (3)
  1. CELEBREX [Concomitant]
  2. ALEVE (CAPLET) [Suspect]
     Dosage: 2 DF, BID
     Dates: start: 20120710
  3. ALEVE (CAPLET) [Suspect]
     Indication: MYALGIA
     Dosage: 1 DF, BID
     Route: 048
     Dates: start: 20120628

REACTIONS (1)
  - DIZZINESS [None]
